FAERS Safety Report 8153813-7 (Version None)
Quarter: 2012Q1

REPORT INFORMATION
  Report Type: 
  Country: None (occurrence: None)
  Receive Date: 20120221
  Receipt Date: 20120215
  Transmission Date: 20120608
  Serious: Yes (Hospitalization)
  Sender: FDA-Public Use
  Company Number: JP-GLAXOSMITHKLINE-B0782474A

PATIENT
  Age: 24 Year
  Sex: Female

DRUGS (16)
  1. PL [Concomitant]
     Route: 048
  2. VITAMEDIN [Concomitant]
     Route: 042
  3. ATARAX [Concomitant]
     Route: 042
  4. ASPIRIN [Concomitant]
     Route: 048
  5. CEFUROXIME [Suspect]
     Indication: PRODUCT USED FOR UNKNOWN INDICATION
     Dosage: 1IUAX PER DAY
     Route: 048
     Dates: start: 20120213, end: 20120213
  6. ASCOMP [Concomitant]
     Route: 048
  7. AMBROXOL HYDROCHLORIDE [Concomitant]
     Route: 048
  8. FLAVITAN [Concomitant]
     Route: 042
  9. DEXTROMETHORPHAN HYDROBROMIDE [Concomitant]
     Route: 048
  10. CLEMASTINE FUMARATE [Concomitant]
     Route: 048
  11. AMPICILLIN [Concomitant]
  12. VITACIMIN [Concomitant]
     Route: 042
  13. ORACEF [Concomitant]
  14. INFUSION [Concomitant]
     Route: 042
  15. ACTIT [Concomitant]
     Route: 042
  16. LEBENIN [Concomitant]

REACTIONS (4)
  - DIARRHOEA [None]
  - PYREXIA [None]
  - LYMPHADENOPATHY [None]
  - CHILLS [None]
